FAERS Safety Report 6439563-3 (Version None)
Quarter: 2009Q4

REPORT INFORMATION
  Report Type: 
  Country: None (occurrence: None)
  Receive Date: 20091113
  Receipt Date: 20091110
  Transmission Date: 20100525
  Serious: Yes (Hospitalization)
  Sender: FDA-Public Use
  Company Number: A0816618A

PATIENT
  Age: 50 Year
  Sex: Male

DRUGS (1)
  1. AVANDIA [Suspect]
     Route: 065
     Dates: start: 20010101, end: 20080101

REACTIONS (4)
  - CARDIAC FAILURE [None]
  - DIABETES MELLITUS [None]
  - MACULAR OEDEMA [None]
  - MULTIPLE FRACTURES [None]
